FAERS Safety Report 7343291-X (Version None)
Quarter: 2011Q1

REPORT INFORMATION
  Report Type: 
  Country: None (occurrence: None)
  Receive Date: 20110310
  Receipt Date: 20110304
  Transmission Date: 20110831
  Serious: Yes (Other)
  Sender: FDA-Public Use
  Company Number: US-PFIZER INC-2010086353

PATIENT
  Sex: Female

DRUGS (18)
  1. LEVOXYL [Interacting]
     Indication: HYPOTHYROIDISM
     Dosage: 100 MG, 1X/DAY
     Route: 048
  2. ACETYLSALICYLIC ACID [Interacting]
     Indication: PAIN
     Dosage: UNK
  3. MIRTAZAPINE [Interacting]
     Dosage: UNK
  4. CYMBALTA [Interacting]
  5. ADVIL [Interacting]
     Indication: PAIN
     Dosage: UNK
     Route: 048
  6. ADVAIR DISKUS 100/50 [Interacting]
     Indication: ASTHMA
     Dosage: UNK
  7. MIRALAX [Concomitant]
     Indication: CONSTIPATION
     Dosage: UNK
  8. PRISTIQ [Interacting]
     Dosage: 50 MG, DAILY
     Route: 048
     Dates: start: 20100704
  9. NEXIUM [Interacting]
     Indication: GASTROOESOPHAGEAL REFLUX DISEASE
     Dosage: UNK, AS NEEDED
  10. NEURONTIN [Interacting]
     Indication: NEUROPATHY PERIPHERAL
     Dosage: 300 MG, DAILY
     Route: 048
  11. ATROVENT [Interacting]
     Indication: ASTHMA
     Dosage: UNK
  12. XANAX [Interacting]
     Indication: INSOMNIA
  13. SIMVASTATIN [Interacting]
     Indication: BLOOD CHOLESTEROL INCREASED
     Dosage: UNK
  14. FLOVENT [Interacting]
     Indication: ASTHMA
     Dosage: UNK
     Route: 055
  15. XANAX [Suspect]
     Indication: ANXIETY
     Dosage: UNK,  TYPICALLY TOOK EVERY OTHER DAY
     Route: 048
     Dates: start: 20080101
  16. LEVOXYL [Interacting]
  17. CYMBALTA [Interacting]
     Indication: PAIN
     Dosage: UNK
  18. SIMVASTATIN [Interacting]
     Indication: HYPERCHOLESTEROLAEMIA

REACTIONS (9)
  - FEELING ABNORMAL [None]
  - DYSPEPSIA [None]
  - BLOOD GLUCOSE DECREASED [None]
  - SOMNOLENCE [None]
  - DRUG INTERACTION [None]
  - RASH [None]
  - ULCER [None]
  - IMPAIRED DRIVING ABILITY [None]
  - PAIN [None]
